FAERS Safety Report 5977014-3 (Version None)
Quarter: 2008Q4

REPORT INFORMATION
  Report Type: 
  Country: None (occurrence: None)
  Receive Date: 20081202
  Receipt Date: 20081202
  Transmission Date: 20090506
  Serious: No
  Sender: FDA-Public Use
  Company Number: None

PATIENT
  Age: 44 Year
  Sex: Male
  Weight: 85.91 kg

DRUGS (1)
  1. OXYCODONE HCL [Suspect]
     Indication: PAIN
     Dosage: 5 MG QID PO
     Route: 048
     Dates: start: 20080806, end: 20081124

REACTIONS (3)
  - PRURITUS [None]
  - RASH [None]
  - URTICARIA [None]
